FAERS Safety Report 7794594-6 (Version None)
Quarter: 2011Q4

REPORT INFORMATION
  Report Type: 
  Country: None (occurrence: None)
  Receive Date: 20111004
  Receipt Date: 20110921
  Transmission Date: 20120403
  Serious: Yes (Hospitalization)
  Sender: FDA-Public Use
  Company Number: DE-ELI_LILLY_AND_COMPANY-DE201108007559

PATIENT
  Age: 73 Year
  Sex: Female

DRUGS (4)
  1. FORTEO [Suspect]
     Indication: OSTEOPOROSIS
     Dosage: UNK, QD
     Route: 058
     Dates: start: 20110811, end: 20110820
  2. AZATHIOPRINE [Concomitant]
  3. CORTISONE ACETATE [Concomitant]
     Dosage: 12.5 MG, UNK
     Dates: start: 20090101
  4. NOVALGIN [Concomitant]

REACTIONS (11)
  - MIGRAINE [None]
  - ARTHRALGIA [None]
  - ARTHROPATHY [None]
  - PAIN IN EXTREMITY [None]
  - PYREXIA [None]
  - HEADACHE [None]
  - BALANCE DISORDER [None]
  - MUSCULOSKELETAL STIFFNESS [None]
  - MICTURITION URGENCY [None]
  - MOVEMENT DISORDER [None]
  - BLOOD TEST ABNORMAL [None]
